FAERS Safety Report 7502481-3 (Version None)
Quarter: 2011Q2

REPORT INFORMATION
  Report Type: 
  Country: None (occurrence: None)
  Receive Date: 20110525
  Receipt Date: 20110520
  Transmission Date: 20111010
  Serious: Yes (Other)
  Sender: FDA-Public Use
  Company Number: US-BRISTOL-MYERS SQUIBB COMPANY-15765407

PATIENT
  Sex: Female

DRUGS (3)
  1. SEROQUEL [Suspect]
  2. ABILIFY [Suspect]
     Indication: MAJOR DEPRESSION
     Dosage: PLANING TO CHANGE DOSE TO 2MG
  3. KLONOPIN [Suspect]

REACTIONS (2)
  - AKATHISIA [None]
  - PSYCHOTIC DISORDER [None]
